FAERS Safety Report 21561538 (Version 2)
Quarter: 2022Q4

REPORT INFORMATION
  Report Type: Spontaneous
  Country: CN (occurrence: None)
  Receive Date: 20221107
  Receipt Date: 20221117
  Transmission Date: 20230113
  Serious: Yes (Other)
  Sender: FDA-Public Use
  Company Number: 2022A366436

PATIENT
  Age: 68 Year
  Sex: Female

DRUGS (2)
  1. OLAPARIB [Suspect]
     Active Substance: OLAPARIB
     Indication: Ovarian epithelial cancer
     Dosage: 2 TABLETS OF 150MG TABLETS, BID, EQUIVALENT TO A TOTAL DAILY DOSE OF 600 MG, BID, TAKEN ORAL, START
     Route: 048
     Dates: start: 20190201
  2. OLAPARIB [Suspect]
     Active Substance: OLAPARIB
     Indication: Ovarian epithelial cancer
     Dosage: 150 MG IN THE MORNING AND 300 MG IN THE EVENING (450 MG DAILY)
     Route: 048
     Dates: start: 20190509

REACTIONS (4)
  - Transfusion [Unknown]
  - Haemoglobin abnormal [Unknown]
  - Asthenia [Unknown]
  - Product use issue [Unknown]

NARRATIVE: CASE EVENT DATE: 20190417
